FAERS Safety Report 7594524-6 (Version None)
Quarter: 2011Q2

REPORT INFORMATION
  Report Type: 
  Country: None (occurrence: None)
  Receive Date: 20110628
  Receipt Date: 20110613
  Transmission Date: 20111010
  Serious: Yes (Hospitalization)
  Sender: FDA-Public Use
  Company Number: 010796

PATIENT
  Age: 49 Year
  Sex: Male

DRUGS (12)
  1. ETOPOSIDE [Concomitant]
  2. OXACILLIN SODIUM (OXACILLIN SODIUM) [Concomitant]
  3. BUSULFAN [Suspect]
     Indication: STEM CELL TRANSPLANT
     Dosage: 75.5 MG, SINGLE, INTRAVENOUS ; 354 MG, DAILY DOSE, INTRAVENOUS
     Route: 042
     Dates: start: 20100713, end: 20100716
  4. BUSULFAN [Suspect]
     Indication: STEM CELL TRANSPLANT
     Dosage: 75.5 MG, SINGLE, INTRAVENOUS ; 354 MG, DAILY DOSE, INTRAVENOUS
     Route: 042
     Dates: start: 20100707, end: 20100707
  5. ACYCLOVIR [Concomitant]
  6. OXYCONTIN [Concomitant]
  7. POTASSIUM (POTASSIUM) [Concomitant]
  8. LOVENOX [Concomitant]
  9. CYCLOPHOSPHAMIDE [Concomitant]
  10. LASIX [Concomitant]
  11. NYSTATIN [Concomitant]
  12. DILAUDID CAN (HYDROMORPHONE HYDROCHLORIDE) [Concomitant]

REACTIONS (3)
  - RENAL FAILURE ACUTE [None]
  - DEEP VEIN THROMBOSIS [None]
  - HYPOKALAEMIA [None]
